FAERS Safety Report 8356980-5 (Version None)
Quarter: 2012Q2

REPORT INFORMATION
  Report Type: 
  Country: None (occurrence: None)
  Receive Date: 20120514
  Receipt Date: 20120501
  Transmission Date: 20120825
  Serious: Yes (Hospitalization)
  Sender: FDA-Public Use
  Company Number: US-PFIZER INC-2012114210

PATIENT
  Age: 65 Year
  Sex: Female

DRUGS (6)
  1. AGGRENOX [Suspect]
  2. AMLODIPINE [Suspect]
     Dosage: UNK
     Dates: start: 20120401, end: 20120401
  3. PREVACID [Suspect]
     Indication: IRRITABLE BOWEL SYNDROME
  4. PREVACID [Suspect]
     Indication: GASTROOESOPHAGEAL REFLUX DISEASE
     Dosage: 30 MG, DAILY
     Route: 048
     Dates: start: 20090101
  5. AMLODIPINE [Suspect]
     Dosage: 0.5 DF, UNK
  6. ACETYLSALICYLIC ACID [Concomitant]
     Dosage: UNK
     Dates: start: 20120430

REACTIONS (2)
  - CEREBRAL HAEMORRHAGE [None]
  - HYPOTENSION [None]
